FAERS Safety Report 4340829-1 (Version None)
Quarter: 2004Q2

REPORT INFORMATION
  Report Type: 
  Country: None (occurrence: None)
  Receive Date: 20040419
  Receipt Date: 20031103
  Transmission Date: 20050107
  Serious: No
  Sender: FDA-Public Use
  Company Number: US-GLAXOSMITHKLINE-A0432600A

PATIENT
  Age: 55 Year
  Sex: Female

DRUGS (4)
  1. ESKALITH [Suspect]
     Dosage: 450MG TWICE PER DAY
     Route: 048
     Dates: start: 20030701
  2. PROZAC [Suspect]
  3. AMBIEN [Concomitant]
  4. KLONOPIN [Concomitant]

REACTIONS (1)
  - HEADACHE [None]
